FAERS Safety Report 14987226 (Version 1)
Quarter: 2018Q2

REPORT INFORMATION
  Report Type: Report from Study
  Country: JP (occurrence: JP)
  Receive Date: 20180608
  Receipt Date: 20180608
  Transmission Date: 20180711
  Serious: Yes (Other)
  Sender: FDA-Public Use
  Company Number: JP-UCBSA-2018025129

PATIENT
  Age: 31 Year
  Sex: Female
  Weight: 38 kg

DRUGS (4)
  1. PHENOBAL [Concomitant]
     Active Substance: PHENOBARBITAL
     Indication: FOCAL DYSCOGNITIVE SEIZURES
     Dosage: 75 MG DAILY
     Route: 048
  2. ALEVIATIN [Concomitant]
     Active Substance: PHENYTOIN SODIUM
     Indication: FOCAL DYSCOGNITIVE SEIZURES
     Dosage: 185 MG DAILY
     Route: 048
  3. LACOSAMIDE. [Suspect]
     Active Substance: LACOSAMIDE
     Indication: FOCAL DYSCOGNITIVE SEIZURES
     Dosage: 25 MG, 2X/DAY (BID)
     Route: 048
     Dates: start: 20180115, end: 20180205
  4. SELENICA-R [Concomitant]
     Active Substance: VALPROATE SODIUM
     Indication: FOCAL DYSCOGNITIVE SEIZURES
     Dosage: 800 MG DAILY
     Route: 048

REACTIONS (2)
  - Epilepsy [Recovered/Resolved]
  - Off label use [Unknown]

NARRATIVE: CASE EVENT DATE: 2018
